FAERS Safety Report 10526901 (Version 4)
Quarter: 2018Q3

REPORT INFORMATION
  Report Type: Report from Study
  Country: CA (occurrence: CA)
  Receive Date: 20141020
  Receipt Date: 20180923
  Transmission Date: 20181010
  Serious: Yes (Other)
  Sender: FDA-Public Use
  Company Number: CA-ROCHE-1476681

PATIENT
  Age: 75 Year
  Sex: Female

DRUGS (12)
  1. METFORMIN [Concomitant]
     Active Substance: METFORMIN HYDROCHLORIDE
  2. ACETYLSALICYLIC ACID [Concomitant]
     Active Substance: ASPIRIN
  3. ACTEMRA [Suspect]
     Active Substance: TOCILIZUMAB
     Dosage: 550 MG Q 4 WEEKS
     Route: 042
     Dates: start: 20161018
  4. SULFASALAZINE. [Concomitant]
     Active Substance: SULFASALAZINE
  5. OMEPRAZOL [Concomitant]
     Active Substance: OMEPRAZOLE
  6. FOLIC ACID. [Concomitant]
     Active Substance: FOLIC ACID
  7. ACTEMRA [Suspect]
     Active Substance: TOCILIZUMAB
     Indication: RHEUMATOID ARTHRITIS
     Route: 042
     Dates: start: 20140703
  8. ACTEMRA [Suspect]
     Active Substance: TOCILIZUMAB
     Route: 042
     Dates: start: 20140924
  9. ACTEMRA [Suspect]
     Active Substance: TOCILIZUMAB
     Dosage: 560 MG Q 4 WEEKS
     Route: 042
     Dates: start: 20160519
  10. PLAQUENIL [Concomitant]
     Active Substance: HYDROXYCHLOROQUINE SULFATE
  11. RISEDRONATE [Concomitant]
     Active Substance: RISEDRONATE SODIUM
  12. METHOTREXATE. [Concomitant]
     Active Substance: METHOTREXATE

REACTIONS (3)
  - Weight decreased [Unknown]
  - Thrombophlebitis superficial [Unknown]
  - Blood pressure increased [Unknown]

NARRATIVE: CASE EVENT DATE: 20141003
